FAERS Safety Report 9267484 (Version 3)
Quarter: 2013Q3

REPORT INFORMATION
  Report Type: Report from Study
  Country: US (occurrence: US)
  Receive Date: 20130502
  Receipt Date: 20130726
  Transmission Date: 20140515
  Serious: Yes (Hospitalization)
  Sender: FDA-Public Use
  Company Number: US-GLAXOSMITHKLINE-A0940707B

PATIENT
  Age: 55 Year
  Sex: Female
  Weight: 103.6 kg

DRUGS (12)
  1. BELIMUMAB [Suspect]
     Indication: SYSTEMIC LUPUS ERYTHEMATOSUS
     Dosage: 1MGK CYCLIC
     Route: 042
     Dates: start: 20070425
  2. CLINDAMYCIN [Suspect]
     Indication: LYMPHADENOPATHY
     Dosage: 300MG FOUR TIMES PER DAY
     Route: 048
     Dates: start: 20130409, end: 20130419
  3. METHOTREXATE [Concomitant]
     Indication: SYSTEMIC LUPUS ERYTHEMATOSUS
     Dosage: 15MG PER DAY
     Route: 048
     Dates: start: 20101016
  4. HYDROXYCHLOROQUINE [Concomitant]
     Indication: SYSTEMIC LUPUS ERYTHEMATOSUS
     Dosage: 200MG TWICE PER DAY
     Route: 048
     Dates: start: 2002
  5. FOLIC ACID [Concomitant]
     Indication: SUPPLEMENTATION THERAPY
     Dosage: 1MG PER DAY
     Route: 048
     Dates: start: 2002
  6. SYNTHROID [Concomitant]
     Indication: HYPOTHYROIDISM
     Dosage: 175MCG PER DAY
     Route: 048
     Dates: start: 1996
  7. LASIX [Concomitant]
     Indication: OEDEMA
     Dosage: 40MG PER DAY
     Route: 048
     Dates: start: 20120511
  8. MESTINON [Concomitant]
     Indication: MYASTHENIA GRAVIS
     Dosage: 60MG THREE TIMES PER DAY
     Route: 048
     Dates: start: 20091027
  9. TYLENOL #3 [Concomitant]
     Indication: PAIN
     Route: 048
     Dates: start: 20070301
  10. MELOXICAM [Concomitant]
     Indication: PAIN
     Dosage: 15MG PER DAY
     Route: 048
     Dates: start: 2005
  11. MESTINON [Concomitant]
     Indication: MYASTHENIA GRAVIS
     Dosage: 180MG PER DAY
     Route: 048
     Dates: start: 20051027
  12. PREDNISON [Concomitant]
     Indication: LYMPHADENOPATHY
     Route: 048
     Dates: start: 20130409, end: 20130416

REACTIONS (1)
  - Rash pustular [Recovered/Resolved]
